FAERS Safety Report 18353585 (Version 1)
Quarter: 2020Q4

REPORT INFORMATION
  Report Type: Spontaneous
  Country: US (occurrence: US)
  Receive Date: 20201007
  Receipt Date: 20201007
  Transmission Date: 20210114
  Serious: Yes (Hospitalization)
  Sender: FDA-Public Use
  Company Number: US-ROCHE-2612896

PATIENT
  Age: 61 Year
  Sex: Female

DRUGS (2)
  1. DILTIZEM [Concomitant]
  2. XELODA [Suspect]
     Active Substance: CAPECITABINE
     Indication: BREAST CANCER
     Dosage: 1500 MG BID
     Route: 048
     Dates: start: 202002, end: 202008

REACTIONS (4)
  - Chest pain [Unknown]
  - Bradycardia [Unknown]
  - Dyspnoea [Unknown]
  - Arthralgia [Unknown]

NARRATIVE: CASE EVENT DATE: 20200812
